FAERS Safety Report 15139998 (Version 1)
Quarter: 2018Q3

REPORT INFORMATION
  Report Type: Spontaneous
  Country: US (occurrence: US)
  Receive Date: 20180713
  Receipt Date: 20180713
  Transmission Date: 20181010
  Serious: No
  Sender: FDA-Public Use
  Company Number: US-DSJP-DSU-2018-114204

PATIENT
  Sex: Female

DRUGS (2)
  1. MORPHABOND ER [Suspect]
     Active Substance: MORPHINE SULFATE
     Dosage: 30 MG, ONCE EVERY 8HR
     Route: 048
     Dates: start: 2018
  2. MORPHABOND ER [Suspect]
     Active Substance: MORPHINE SULFATE
     Indication: PAIN
     Dosage: 30 MG, ONCE EVERY 12HR
     Route: 048
     Dates: start: 2018, end: 2018

REACTIONS (3)
  - Drug ineffective [Unknown]
  - Medication residue present [Unknown]
  - Off label use [Unknown]

NARRATIVE: CASE EVENT DATE: 2018
